FAERS Safety Report 7525259-3 (Version None)
Quarter: 2011Q2

REPORT INFORMATION
  Report Type: 
  Country: None (occurrence: None)
  Receive Date: 20110606
  Receipt Date: 20110524
  Transmission Date: 20111010
  Serious: Yes (Other)
  Sender: FDA-Public Use
  Company Number: DK-JNJFOC-20110511866

PATIENT
  Age: 30 Year
  Sex: Female

DRUGS (3)
  1. USTEKINUMAB [Suspect]
     Indication: HIDRADENITIS
     Route: 058
  2. USTEKINUMAB [Suspect]
     Route: 058
  3. USTEKINUMAB [Suspect]
     Route: 058

REACTIONS (5)
  - ARTHRITIS [None]
  - DRUG INEFFECTIVE FOR UNAPPROVED INDICATION [None]
  - CYSTITIS [None]
  - HIDRADENITIS [None]
  - DERMATITIS PSORIASIFORM [None]
